FAERS Safety Report 14583916 (Version 3)
Quarter: 2018Q2

REPORT INFORMATION
  Report Type: Spontaneous
  Country: GB (occurrence: GB)
  Receive Date: 20180228
  Receipt Date: 20180531
  Transmission Date: 20180711
  Serious: Yes (Life-Threatening, Hospitalization, Other)
  Sender: FDA-Public Use
  Company Number: GB-TEVA-2018-GB-862209

PATIENT
  Age: 80 Year
  Sex: Male
  Weight: 58.6 kg

DRUGS (21)
  1. DICLOFENAC [Concomitant]
     Active Substance: DICLOFENAC
     Indication: PERIPHERAL VASCULAR DISORDER
     Route: 047
     Dates: start: 20100301
  2. COLCHICINE. [Concomitant]
     Active Substance: COLCHICINE
     Indication: GOUT
     Dosage: 1500 MILLIGRAM DAILY; 1500 MICROGRAM
     Route: 048
     Dates: start: 20160216
  3. ACICLOVIR [Concomitant]
     Active Substance: ACYCLOVIR
     Indication: ANTIVIRAL PROPHYLAXIS
     Dosage: 400 MILLIGRAM DAILY;
     Route: 048
     Dates: start: 20151208
  4. ASPIRIN. [Concomitant]
     Active Substance: ASPIRIN
     Indication: CAROTID ARTERY STENOSIS
     Dosage: 75 MILLIGRAM DAILY; 75 MILLIGRAM
     Route: 048
     Dates: start: 20100301
  5. DEXAMETHASONE. [Suspect]
     Active Substance: DEXAMETHASONE
     Indication: PLASMA CELL MYELOMA
     Dosage: 20 MILLIGRAM
     Route: 048
     Dates: start: 20151218, end: 20160302
  6. LINAGLIPTIN [Concomitant]
     Active Substance: LINAGLIPTIN
     Indication: DIABETES MELLITUS
     Dosage: 2.1429 MILLIGRAM
     Route: 048
     Dates: start: 20100301
  7. CLEXANE [Concomitant]
     Active Substance: ENOXAPARIN SODIUM
     Indication: THROMBOSIS PROPHYLAXIS
     Dosage: 40 MILLIGRAM DAILY; 40 MILLIGRAM
     Route: 058
     Dates: start: 20160408
  8. TICAGRELOR. [Concomitant]
     Active Substance: TICAGRELOR
     Indication: AORTIC VALVE REPLACEMENT
     Dosage: 90 MILLIGRAM DAILY; 90 MILLIGRAM
     Route: 048
     Dates: start: 20100301
  9. AMLODIPINE [Concomitant]
     Active Substance: AMLODIPINE BESYLATE
     Indication: HYPERTENSION
     Dosage: 10 MILLIGRAM DAILY; 10 MILLIGRAM
     Route: 048
  10. OMEPRAZOLE. [Concomitant]
     Active Substance: OMEPRAZOLE
     Indication: GASTROINTESTINAL DISORDER THERAPY
     Dosage: 20 MILLIGRAM DAILY;
     Route: 048
     Dates: start: 20151208
  11. ADRENALINE [Concomitant]
     Active Substance: EPINEPHRINE
     Indication: DUODENAL ULCER
     Route: 065
  12. LANTUS [Concomitant]
     Active Substance: INSULIN GLARGINE
     Indication: BLOOD GLUCOSE ABNORMAL
     Route: 065
  13. TICAGRELOR. [Concomitant]
     Active Substance: TICAGRELOR
     Indication: GASTROINTESTINAL HAEMORRHAGE
  14. PAMIDRONATE [Concomitant]
     Active Substance: PAMIDRONATE DISODIUM
     Indication: OSTEOPOROSIS PROPHYLAXIS
     Dosage: 1 MILLIGRAM
     Route: 041
     Dates: start: 20151230
  15. COTRIMOXAZOLE [Concomitant]
     Active Substance: SULFAMETHOXAZOLE\TRIMETHOPRIM
     Indication: ANTIFUNGAL PROPHYLAXIS
     Dosage: 411.4286 MILLIGRAM
     Route: 048
  16. REVLIMID [Suspect]
     Active Substance: LENALIDOMIDE
     Indication: PLASMA CELL MYELOMA
     Dosage: 10 MILLIGRAM DAILY; 10 MILLIGRAM
     Route: 048
     Dates: start: 20151218, end: 20160308
  17. PARACETAMOL [Concomitant]
     Active Substance: ACETAMINOPHEN
     Indication: FEMUR FRACTURE
     Dosage: 1 GRAM DAILY; 1 GRAM
     Route: 048
     Dates: start: 20160102
  18. LANSOPRAZOLE. [Concomitant]
     Active Substance: LANSOPRAZOLE
     Indication: EPIGASTRIC DISCOMFORT
     Dosage: 15 MILLIGRAM DAILY; 15 MILLIGRAM
     Route: 048
     Dates: start: 20160408
  19. ATORVASTATIN [Concomitant]
     Active Substance: ATORVASTATIN
     Indication: HYPERCHOLESTEROLAEMIA
     Dosage: 20 MILLIGRAM DAILY; 20 MILLIGRAM
     Route: 048
     Dates: start: 20100301
  20. FLUCONAZOLE. [Concomitant]
     Active Substance: FLUCONAZOLE
     Indication: ANTIFUNGAL PROPHYLAXIS
     Dosage: 100 MILLIGRAM DAILY; 100 MILLIGRAM
     Route: 048
     Dates: start: 20160408
  21. OMEPRAZOLE. [Concomitant]
     Active Substance: OMEPRAZOLE
     Indication: GASTROINTESTINAL HAEMORRHAGE
     Route: 041
     Dates: start: 20160417, end: 20160418

REACTIONS (3)
  - Gastrointestinal haemorrhage [Recovered/Resolved]
  - Stevens-Johnson syndrome [Recovered/Resolved with Sequelae]
  - Neutropenic sepsis [Recovered/Resolved]

NARRATIVE: CASE EVENT DATE: 20160310
